FAERS Safety Report 19964046 (Version 1)
Quarter: 2021Q4

REPORT INFORMATION
  Report Type: Spontaneous
  Country: US (occurrence: US)
  Receive Date: 20211018
  Receipt Date: 20211018
  Transmission Date: 20220303
  Serious: No
  Sender: FDA-Public Use
  Company Number: None

PATIENT
  Age: 64 Year
  Sex: Female
  Weight: 69.75 kg

DRUGS (11)
  1. CAPECITABINE [Suspect]
     Active Substance: CAPECITABINE
     Indication: Colorectal cancer
     Dosage: ?          OTHER FREQUENCY:BID FOR 7/14 DAYS;
     Route: 048
     Dates: start: 20190314
  2. Oseltamivir phosphate 75mg [Concomitant]
  3. LETROZOLE [Concomitant]
     Active Substance: LETROZOLE
  4. FASLODEX [Concomitant]
     Active Substance: FULVESTRANT
  5. Centrum Adults [Concomitant]
  6. Diclofenac sodium 50mg [Concomitant]
  7. Prochlorperazine 10mg [Concomitant]
  8. Diphenoxylate-Atropine 2.5-0.025mg [Concomitant]
  9. NORCO [Concomitant]
     Active Substance: ACETAMINOPHEN\HYDROCODONE BITARTRATE
  10. Peridex 0.12% [Concomitant]
  11. XGEVA [Concomitant]
     Active Substance: DENOSUMAB

REACTIONS (1)
  - Musculoskeletal stiffness [None]

NARRATIVE: CASE EVENT DATE: 20211018
